FAERS Safety Report 11154717 (Version 2)
Quarter: 2015Q3

REPORT INFORMATION
  Report Type: Spontaneous
  Country: US (occurrence: None)
  Receive Date: 20150529
  Receipt Date: 20150917
  Transmission Date: 20151125
  Serious: Yes (Other)
  Sender: FDA-Public Use
  Company Number: 1224850-2015-00031

PATIENT
  Age: 81 Year
  Sex: Male

DRUGS (17)
  1. TYLENOL [Concomitant]
     Active Substance: ACETAMINOPHEN
  2. ACTIVASE [Concomitant]
     Active Substance: ALTEPLASE
  3. EPOGEN [Concomitant]
     Active Substance: ERYTHROPOIETIN
  4. CLONIDINE HCL [Concomitant]
     Active Substance: CLONIDINE HYDROCHLORIDE
  5. NEPHROCAPS [Concomitant]
     Active Substance: ASCORBIC ACID\BIOTIN\CYANOCOBALAMIN\FOLIC ACID\NIACIN\PANTOTHENIC ACID\PYRIDOXINE\RIBOFLAVIN\THIAMINE
  6. LOPRESSOR [Concomitant]
     Active Substance: METOPROLOL TARTRATE
  7. NIFEDIPINE. [Concomitant]
     Active Substance: NIFEDIPINE
  8. ZEMPLAR [Concomitant]
     Active Substance: PARICALCITOL
  9. BENADRYL [Concomitant]
     Active Substance: DIPHENHYDRAMINE HYDROCHLORIDE
  10. HEPARIN [Concomitant]
     Active Substance: HEPARIN SODIUM
  11. FERRLECIT [Concomitant]
     Active Substance: SODIUM FERRIC GLUCONATE COMPLEX
  12. TUMS [Concomitant]
     Active Substance: CALCIUM CARBONATE
  13. DOCUSATE SODIUM. [Concomitant]
     Active Substance: DOCUSATE SODIUM
  14. ATARAX [Concomitant]
     Active Substance: HYDROXYZINE\HYDROXYZINE HYDROCHLORIDE
  15. COUMADIN [Concomitant]
     Active Substance: WARFARIN SODIUM
  16. VICODIN [Concomitant]
     Active Substance: ACETAMINOPHEN\HYDROCODONE BITARTRATE
  17. PHOSLO [Suspect]
     Active Substance: CALCIUM ACETATE
     Indication: HYPERPHOSPHATAEMIA
     Dosage: 667 MG 1 PO, QD
     Route: 048
     Dates: start: 20040101, end: 20040101

REACTIONS (3)
  - Urticaria [None]
  - Face oedema [None]
  - Oedema peripheral [None]

NARRATIVE: CASE EVENT DATE: 20040101
